FAERS Safety Report 5214148-5 (Version None)
Quarter: 2007Q1

REPORT INFORMATION
  Report Type: 
  Country: None (occurrence: None)
  Receive Date: 20070122
  Receipt Date: 20070111
  Transmission Date: 20070707
  Serious: Yes (Life-Threatening, Hospitalization)
  Sender: FDA-Public Use
  Company Number: GB-JNJFOC-20070102465

PATIENT
  Sex: Female

DRUGS (10)
  1. REMICADE [Suspect]
     Indication: CROHN'S DISEASE
     Route: 042
  2. AMPHOTERICIN B [Concomitant]
     Route: 065
  3. AZATHIOPRINE [Concomitant]
     Indication: CROHN'S DISEASE
     Route: 048
  4. CIPROFLOXACIN [Concomitant]
     Route: 065
  5. FLUTICASONE PROPIONATE [Concomitant]
     Route: 055
  6. IPRATROPIUM BROMIDE [Concomitant]
     Route: 055
  7. LANSOPRAZOLE [Concomitant]
     Route: 065
  8. MONTELUKAST SODIUM [Concomitant]
     Route: 065
  9. PARACETAMOL [Concomitant]
     Route: 065
  10. SALMETEROL [Concomitant]
     Route: 055

REACTIONS (1)
  - PULMONARY TUBERCULOSIS [None]
